FAERS Safety Report 5234130-1 (Version None)
Quarter: 2007Q1

REPORT INFORMATION
  Report Type: 
  Country: None (occurrence: None)
  Receive Date: 20070208
  Receipt Date: 20070202
  Transmission Date: 20070707
  Serious: Yes (Life-Threatening, Hospitalization)
  Sender: FDA-Public Use
  Company Number: DE-MERCK-0702DEU00012

PATIENT
  Age: 44 Year
  Sex: Female
  Weight: 68 kg

DRUGS (5)
  1. EMEND [Suspect]
     Route: 048
     Dates: start: 20060101
  2. NEORECORMAN [Suspect]
     Indication: ANAEMIA
     Route: 058
     Dates: start: 20060407, end: 20060506
  3. CISPLATIN [Suspect]
     Indication: CERVIX CARCINOMA
     Route: 065
     Dates: start: 20060328
  4. NOVALGIN [Concomitant]
     Route: 048
  5. BLOOD CELLS, RED [Concomitant]
     Route: 042

REACTIONS (4)
  - ANAEMIA [None]
  - CEREBRAL INFARCTION [None]
  - CEREBROVASCULAR ACCIDENT [None]
  - GAMMA-GLUTAMYLTRANSFERASE INCREASED [None]
